FAERS Safety Report 6107116-2 (Version None)
Quarter: 2009Q1

REPORT INFORMATION
  Report Type: 
  Country: None (occurrence: None)
  Receive Date: 20090305
  Receipt Date: 20090305
  Transmission Date: 20090719
  Serious: No
  Sender: FDA-Public Use
  Company Number: None

PATIENT
  Sex: Female

DRUGS (1)
  1. FEMRING [Suspect]
     Indication: HOT FLUSH
     Dosage: 0.1 MG / 24 HRS Q 90 DAYS VAG
     Route: 067
     Dates: start: 20081117, end: 20090210

REACTIONS (3)
  - DRUG EFFECT DECREASED [None]
  - HOT FLUSH [None]
  - THERAPEUTIC RESPONSE DECREASED [None]
